FAERS Safety Report 24328309 (Version 3)
Quarter: 2025Q3

REPORT INFORMATION
  Report Type: Report from Study
  Country: US (occurrence: US)
  Receive Date: 20240917
  Receipt Date: 20250813
  Transmission Date: 20251020
  Serious: Yes (Other)
  Sender: ALEXION PHARMACEUTICALS
  Company Number: 2024A206628

PATIENT
  Sex: Male

DRUGS (2)
  1. TEZSPIRE [Suspect]
     Active Substance: TEZEPELUMAB-EKKO
  2. TEZSPIRE [Suspect]
     Active Substance: TEZEPELUMAB-EKKO

REACTIONS (6)
  - Cardiomyopathy [Unknown]
  - Respiratory failure [Unknown]
  - Cerebrovascular accident [Unknown]
  - Blindness transient [Unknown]
  - Cardiac ventricular thrombosis [Unknown]
  - Product use issue [Unknown]
